FAERS Safety Report 8590453 (Version 6)
Quarter: 2014Q2

REPORT INFORMATION
  Report Type: Spontaneous
  Country: US (occurrence: US)
  Receive Date: 20120601
  Receipt Date: 20140422
  Transmission Date: 20141212
  Serious: Yes (Hospitalization, Other)
  Sender: FDA-Public Use
  Company Number: US-ASTRAZENECA-2012SE34393

PATIENT
  Age: 76 Year
  Sex: Female
  Weight: 117.9 kg

DRUGS (13)
  1. NEXIUM [Suspect]
     Indication: GASTROOESOPHAGEAL REFLUX DISEASE
     Dosage: 40 MG, ONE OR TWICE DAILY
     Route: 048
     Dates: end: 2010
  2. NEXIUM [Suspect]
     Indication: GASTROOESOPHAGEAL REFLUX DISEASE
     Route: 048
     Dates: start: 20060130
  3. AVALIDE [Concomitant]
     Dosage: 150-12.5 TO 300-12.5 MG
     Dates: start: 20060126
  4. TOPROL XL [Concomitant]
     Dates: start: 20060119
  5. ZOCOR [Concomitant]
     Dates: start: 20060126
  6. MILK OF MAGNESIA [Concomitant]
     Dates: start: 2011
  7. PRAVACHOL [Concomitant]
     Dates: start: 20100604
  8. LOPRESSOR [Concomitant]
     Dates: start: 20100604
  9. ZETIA [Concomitant]
     Dates: start: 20100604
  10. FERROUS SULF [Concomitant]
     Dates: start: 20100604
  11. FLAGYL [Concomitant]
     Dates: start: 20100604
  12. CIPRO [Concomitant]
     Dates: start: 20100114
  13. CALCIUM [Concomitant]
     Dates: start: 20090908

REACTIONS (24)
  - Cerebrovascular accident [Unknown]
  - Neoplasm malignant [Unknown]
  - Spinal compression fracture [Unknown]
  - Thoracic vertebral fracture [Unknown]
  - Osteoarthritis [Unknown]
  - Osteoporosis [Unknown]
  - Spinal fracture [Unknown]
  - Fall [Unknown]
  - Bone disorder [Unknown]
  - Multiple fractures [Unknown]
  - Arthritis [Unknown]
  - Cataract [Unknown]
  - Hypothyroidism [Unknown]
  - Cardiovascular disorder [Unknown]
  - Rheumatoid arthritis [Unknown]
  - Rib fracture [Unknown]
  - Osteopenia [Unknown]
  - Foot fracture [Unknown]
  - Upper limb fracture [Unknown]
  - Back injury [Unknown]
  - Limb injury [Unknown]
  - Body height decreased [Unknown]
  - Intervertebral disc degeneration [Unknown]
  - Arthropathy [Unknown]
